FAERS Safety Report 20514022 (Version 1)
Quarter: 2022Q1

REPORT INFORMATION
  Report Type: Spontaneous
  Country: US (occurrence: US)
  Receive Date: 20220224
  Receipt Date: 20220224
  Transmission Date: 20220423
  Serious: No
  Sender: FDA-Public Use
  Company Number: US-AMNEAL PHARMACEUTICALS-2021-AMRX-01708

PATIENT
  Age: 64 Year
  Sex: Female

DRUGS (1)
  1. RYTARY [Suspect]
     Active Substance: CARBIDOPA\LEVODOPA
     Indication: Product used for unknown indication
     Dosage: 14 CAPSULES, QD, (3 CAPSULES 4/DAY AND 2 CAPSULES AT BEDTIME)
     Route: 048
     Dates: start: 202104, end: 202105

REACTIONS (4)
  - Dystonia [Not Recovered/Not Resolved]
  - Gait inability [Not Recovered/Not Resolved]
  - Abnormal behaviour [Not Recovered/Not Resolved]
  - Prescribed overdose [Unknown]

NARRATIVE: CASE EVENT DATE: 20210401
